FAERS Safety Report 9332618 (Version 2)
Quarter: 2013Q3

REPORT INFORMATION
  Report Type: Report from Study
  Country: NL (occurrence: NL)
  Receive Date: 20130606
  Receipt Date: 20130717
  Transmission Date: 20140515
  Serious: Yes (Death)
  Sender: FDA-Public Use
  Company Number: NL-ROCHE-1232704

PATIENT
  Age: 86 Year
  Sex: Male

DRUGS (1)
  1. MIRCERA [Suspect]
     Indication: NEPHROGENIC ANAEMIA
     Dosage: 100 INJECTION FLUID 333UG/ML WWSP 0.3ML
     Route: 058
     Dates: start: 20121027, end: 20130301

REACTIONS (1)
  - Death [Fatal]
